FAERS Safety Report 10090690 (Version 1)
Quarter: 2014Q2

REPORT INFORMATION
  Report Type: Spontaneous
  Country: US (occurrence: None)
  Receive Date: 20140417
  Receipt Date: 20140417
  Transmission Date: 20141212
  Serious: Yes (Other)
  Sender: FDA-Public Use
  Company Number: FK201401324

PATIENT
  Age: 63 Year
  Sex: Female

DRUGS (1)
  1. ROPIVACAINE [Suspect]
     Indication: SEDATION

REACTIONS (5)
  - Dyspnoea at rest [None]
  - Atelectasis [None]
  - Phrenic nerve paralysis [None]
  - Refusal of treatment by patient [None]
  - Acquired diaphragmatic eventration [None]
